FAERS Safety Report 4448001-1 (Version None)
Quarter: 2004Q3

REPORT INFORMATION
  Report Type: 
  Country: None (occurrence: None)
  Receive Date: 20040913
  Receipt Date: 20040901
  Transmission Date: 20050211
  Serious: Yes (Hospitalization)
  Sender: FDA-Public Use
  Company Number: FR-MERCK-0409FRA00006

PATIENT
  Age: 76 Year
  Sex: Male
  Weight: 60 kg

DRUGS (4)
  1. ASPIRIN LYSINE [Suspect]
     Route: 048
  2. FLUVASTATIN SODIUM [Suspect]
     Route: 048
     Dates: start: 19970615, end: 20040618
  3. RAMIPRIL [Suspect]
     Route: 048
  4. TIMOPTIC [Suspect]
     Route: 047

REACTIONS (2)
  - INTERSTITIAL LUNG DISEASE [None]
  - WEIGHT INCREASED [None]
